FAERS Safety Report 22356345 (Version 1)
Quarter: 2023Q2

REPORT INFORMATION
  Report Type: Spontaneous
  Country: US (occurrence: None)
  Receive Date: 20230523
  Receipt Date: 20230523
  Transmission Date: 20230721
  Serious: No
  Sender: FDA-Public Use
  Company Number: None

PATIENT

DRUGS (2)
  1. MACROBID [Suspect]
     Active Substance: NITROFURANTOIN\NITROFURANTOIN MONOHYDRATE
     Route: 048
  2. MACRODANTIN [Suspect]
     Active Substance: NITROFURANTOIN
     Route: 048

REACTIONS (2)
  - Product selection error [None]
  - Intercepted product dispensing error [None]
